FAERS Safety Report 9767773 (Version 1)
Quarter: 2013Q4

REPORT INFORMATION
  Report Type: Spontaneous
  Country: US (occurrence: US)
  Receive Date: 20131217
  Receipt Date: 20131217
  Transmission Date: 20140711
  Serious: Yes (Other)
  Sender: FDA-Public Use
  Company Number: US-BRISTOL-MYERS SQUIBB COMPANY-19898063

PATIENT
  Age: 44 Year
  Sex: Male

DRUGS (1)
  1. SPRYCEL [Suspect]
     Dosage: TABS
     Route: 048
     Dates: start: 201204

REACTIONS (1)
  - Spinal fracture [Not Recovered/Not Resolved]
